FAERS Safety Report 4539061-8 (Version None)
Quarter: 2004Q4

REPORT INFORMATION
  Report Type: 
  Country: None (occurrence: None)
  Receive Date: 20041222
  Receipt Date: 20041213
  Transmission Date: 20050328
  Serious: Yes (Death)
  Sender: FDA-Public Use
  Company Number: SUSI-2004-00445

PATIENT
  Age: 58 Year
  Sex: Female
  Weight: 104.3 kg

DRUGS (1)
  1. PROAMATINE [Suspect]
     Indication: ORTHOSTATIC HYPOTENSION
     Dosage: SEE IMAGE
     Route: 048
     Dates: start: 20040801, end: 20040805

REACTIONS (6)
  - CARDIAC FAILURE CONGESTIVE [None]
  - HYPERTENSIVE CARDIOMYOPATHY [None]
  - MEDICATION ERROR [None]
  - RESPIRATORY ARREST [None]
  - RESPIRATORY FAILURE [None]
  - SNORING [None]
